FAERS Safety Report 21836595 (Version 1)
Quarter: 2023Q1

REPORT INFORMATION
  Report Type: Other
  Country: US (occurrence: US)
  Receive Date: 20230109
  Receipt Date: 20230109
  Transmission Date: 20230418
  Serious: Yes (Other)
  Sender: FDA-Public Use
  Company Number: US-INTERCEPT-PM2022001533

PATIENT
  Sex: Female

DRUGS (5)
  1. OCALIVA [Suspect]
     Active Substance: OBETICHOLIC ACID
     Indication: Primary biliary cholangitis
     Dosage: 5 MILLIGRAM, QD
     Route: 048
     Dates: start: 20220721, end: 20220911
  2. OCALIVA [Suspect]
     Active Substance: OBETICHOLIC ACID
     Dosage: 5 MILLIGRAM, QD
     Route: 048
     Dates: start: 202209
  3. HYDROCODONE [Suspect]
     Active Substance: HYDROCODONE
     Indication: Product used for unknown indication
     Dosage: UNK
     Route: 065
  4. URSODIOL [Concomitant]
     Active Substance: URSODIOL
  5. LACTULOSE [Concomitant]
     Active Substance: LACTULOSE
     Indication: Pancreatitis chronic

REACTIONS (5)
  - Pancreatitis chronic [Unknown]
  - Liver function test increased [Unknown]
  - Dizziness [Unknown]
  - Pruritus [Unknown]
  - Therapy interrupted [Recovered/Resolved]

NARRATIVE: CASE EVENT DATE: 20220101
